FAERS Safety Report 5331069-8 (Version None)
Quarter: 2007Q2

REPORT INFORMATION
  Report Type: 
  Country: None (occurrence: None)
  Receive Date: 20070522
  Receipt Date: 20070517
  Transmission Date: 20071010
  Serious: Yes (Life-Threatening)
  Sender: FDA-Public Use
  Company Number: B0471758A

PATIENT
  Age: 77 Year
  Sex: Male

DRUGS (3)
  1. AUGMENTIN '125' [Suspect]
     Indication: PNEUMONIA
     Route: 042
     Dates: start: 20070504, end: 20070504
  2. KLACID [Concomitant]
     Dosage: 625MG THREE TIMES PER DAY
     Route: 048
  3. OFLOXACIN [Concomitant]
     Dosage: 200MG TWICE PER DAY
     Route: 048

REACTIONS (3)
  - ANAPHYLACTIC SHOCK [None]
  - BLOOD PRESSURE IMMEASURABLE [None]
  - PULSE ABSENT [None]
